FAERS Safety Report 10570176 (Version 1)
Quarter: 2014Q4

REPORT INFORMATION
  Report Type: Spontaneous
  Country: CN (occurrence: None)
  Receive Date: 20141105
  Receipt Date: 20141105
  Transmission Date: 20150529
  Serious: Yes (Other)
  Sender: FDA-Public Use
  Company Number: FK201404739

PATIENT
  Age: 60 Year
  Sex: Male

DRUGS (1)
  1. INTRALIPID [Suspect]
     Active Substance: EGG PHOSPHOLIPIDS\GLYCERIN\SOYBEAN OIL
     Indication: NUTRITIONAL SUPPLEMENTATION
     Dosage: 250 ML, 1 IN 1 D, INTRAVENOUS DRIP
     Route: 041
     Dates: start: 20140422, end: 20140422

REACTIONS (4)
  - Loss of consciousness [None]
  - Pruritus [None]
  - Coma [None]
  - Respiratory arrest [None]

NARRATIVE: CASE EVENT DATE: 20140422
